FAERS Safety Report 8297095-4 (Version None)
Quarter: 2012Q2

REPORT INFORMATION
  Report Type: 
  Country: None (occurrence: None)
  Receive Date: 20120416
  Receipt Date: 20120402
  Transmission Date: 20120825
  Serious: Yes (Other)
  Sender: FDA-Public Use
  Company Number: 2012SA022655

PATIENT
  Sex: Female

DRUGS (1)
  1. MENTHOL [Suspect]

REACTIONS (3)
  - THERMAL BURN [None]
  - PAIN [None]
  - DEFORMITY [None]
